FAERS Safety Report 9472378 (Version 2)
Quarter: 2013Q3

REPORT INFORMATION
  Report Type: Spontaneous
  Country: US (occurrence: US)
  Receive Date: 20130823
  Receipt Date: 20130826
  Transmission Date: 20140515
  Serious: Yes (Life-Threatening)
  Sender: FDA-Public Use
  Company Number: US-ROCHE-1262539

PATIENT
  Sex: Female

DRUGS (3)
  1. RITUXAN [Suspect]
     Indication: B-CELL LYMPHOMA
     Route: 042
     Dates: start: 2010
  2. RITUXAN [Suspect]
     Route: 042
     Dates: start: 2012, end: 201303
  3. BENDAMUSTINE [Suspect]
     Indication: B-CELL LYMPHOMA
     Route: 065
     Dates: start: 2012

REACTIONS (14)
  - Respiratory arrest [Unknown]
  - Erythema [Recovered/Resolved]
  - Blood pressure decreased [Recovered/Resolved]
  - Urticaria [Recovered/Resolved]
  - Lip swelling [Unknown]
  - Swollen tongue [Unknown]
  - Chromaturia [Unknown]
  - Constipation [Unknown]
  - Dehydration [Unknown]
  - Gastrointestinal pain [Unknown]
  - Platelet count decreased [Unknown]
  - Dyspnoea [Recovered/Resolved]
  - Fatigue [Recovered/Resolved]
  - Malaise [Unknown]
